FAERS Safety Report 10641684 (Version 4)
Quarter: 2015Q1

REPORT INFORMATION
  Report Type: Spontaneous
  Country: US (occurrence: US)
  Receive Date: 20141209
  Receipt Date: 20150204
  Transmission Date: 20150720
  Serious: Yes (Hospitalization, Other)
  Sender: FDA-Public Use
  Company Number: US-B.I. PHARMACEUTICALS,INC./RIDGEFIELD-2014-BI-58739BP

PATIENT
  Age: 69 Year
  Sex: Female
  Weight: 58.5 kg

DRUGS (7)
  1. REMODULIN [Suspect]
     Active Substance: TREPROSTINIL
     Dosage: FORMULATION: INJECTION; ROUTE: IV DRIP; STRENGTH:2.5MG/ML; DOSAGE: 0.0265 UG/KG
     Route: 050
     Dates: start: 20130322
  2. ADEMPAS [Concomitant]
     Active Substance: RIOCIGUAT
     Indication: PRODUCT USED FOR UNKNOWN INDICATION
     Route: 065
  3. WARFARIN [Concomitant]
     Active Substance: WARFARIN
     Indication: PRODUCT USED FOR UNKNOWN INDICATION
     Route: 065
  4. REMODULIN [Suspect]
     Active Substance: TREPROSTINIL
     Dosage: FORMULATION: INJECTION; ROUTE: IV DRIP; STRENGTH:2.5MG/ML; DOSAGE: 0.0265 UG/KG
     Route: 050
     Dates: start: 20130224
  5. PRADAXA [Suspect]
     Active Substance: DABIGATRAN ETEXILATE MESYLATE
     Indication: PRODUCT USED FOR UNKNOWN INDICATION
     Route: 065
     Dates: start: 20141115
  6. REMODULIN [Suspect]
     Active Substance: TREPROSTINIL
     Indication: PULMONARY HYPERTENSION
     Dosage: FORMULATION: INJECTION; ROUTE: IV DRIP; STRENGTH:2.5MG/ML; DOSAGE: 0.0265 UG/ KG/ MIN
     Route: 050
     Dates: start: 20130125
  7. REMODULIN [Suspect]
     Active Substance: TREPROSTINIL
     Dosage: FORMULATION: INJECTION; ROUTE: IV DRIP; STRENGTH:2.5MG/ML; DOSAGE: 0.0265 UG/KG
     Route: 050
     Dates: start: 20131003

REACTIONS (11)
  - Malaise [Unknown]
  - Vascular injury [Unknown]
  - Confusional state [Unknown]
  - Fluid retention [Unknown]
  - Haemoptysis [Unknown]
  - Gait disturbance [Unknown]
  - Dyspnoea [Unknown]
  - Pneumonia [Unknown]
  - Sepsis [Unknown]
  - Fatigue [Unknown]
  - Hallucination [Unknown]

NARRATIVE: CASE EVENT DATE: 2014
